FAERS Safety Report 25526271 (Version 1)
Quarter: 2025Q3

REPORT INFORMATION
  Report Type: Report from Study
  Country: EU (occurrence: EU)
  Receive Date: 20250707
  Receipt Date: 20250707
  Transmission Date: 20251020
  Serious: Yes (Death, Hospitalization)
  Sender: PFIZER
  Company Number: None

PATIENT
  Age: 60 Year
  Sex: Female
  Weight: 71 kg

DRUGS (15)
  1. BEVACIZUMAB [Suspect]
     Active Substance: BEVACIZUMAB
     Indication: Breast cancer
     Dosage: 15 MG/KG, EVERY 3 WEEKS
     Dates: start: 20100921
  2. BEVACIZUMAB [Suspect]
     Active Substance: BEVACIZUMAB
     Dosage: 15 MG/KG, EVERY 3 WEEKS 15 MG/KG, EVERY 3 WEEKS (LAST DOSE PRIOR TO EVENT, TAKEN AS PER PROTOCOL)
     Dates: start: 20101115
  3. AVASTIN [Suspect]
     Active Substance: BEVACIZUMAB
     Indication: Breast cancer metastatic
     Dosage: 15 MG/KG, EVERY 3 WEEKS
     Dates: start: 20100921
  4. AVASTIN [Suspect]
     Active Substance: BEVACIZUMAB
     Dosage: 15 MG/KG, EVERY 3 WEEKS (LAST DOSE PRIOR TO EVENT, TAKEN AS PER PROTOCOL)
     Dates: start: 20101115
  5. XELODA [Suspect]
     Active Substance: CAPECITABINE
     Indication: Breast cancer
     Dosage: 1000 MG/M2, 2X/DAY (DAYS 1-14)
     Dates: start: 20100921
  6. XELODA [Suspect]
     Active Substance: CAPECITABINE
     Dosage: 1000 MG/M2, 2X/DAY (DAYS 1-14)
     Dates: start: 20101022
  7. VINORELBINE [Suspect]
     Active Substance: VINORELBINE TARTRATE
     Indication: Breast cancer metastatic
     Dosage: EVERY 3 WEEKS
     Dates: start: 20100921
  8. VINORELBINE [Suspect]
     Active Substance: VINORELBINE TARTRATE
     Dosage: EVERY 3 WEEKS
     Dates: start: 20101123
  9. ALLOPURINOL [Concomitant]
     Active Substance: ALLOPURINOL
     Dosage: DAILY DOSE: 100 MG MILLGRAM(S) EVERY DAYS
     Dates: end: 20110109
  10. BISOPROLOL FUMARATE\HYDROCHLOROTHIAZIDE [Concomitant]
     Active Substance: BISOPROLOL FUMARATE\HYDROCHLOROTHIAZIDE
     Dates: end: 20110109
  11. ENALAPRIL [Concomitant]
     Active Substance: ENALAPRIL
     Dates: end: 20110109
  12. LASIX [Concomitant]
     Active Substance: FUROSEMIDE
     Dates: end: 20110109
  13. ORACEFAL [CEFADROXIL] [Concomitant]
     Dates: end: 20110109
  14. PANTOPRAZOLE SODIUM [Concomitant]
     Active Substance: PANTOPRAZOLE SODIUM
     Dates: end: 20110109
  15. PLAVIX [Concomitant]
     Active Substance: CLOPIDOGREL BISULFATE
     Dates: end: 20110109

REACTIONS (4)
  - Asthenia [Fatal]
  - Pulmonary embolism [Fatal]
  - Renal failure [Fatal]
  - Sepsis [Fatal]

NARRATIVE: CASE EVENT DATE: 20101123
